FAERS Safety Report 13281990 (Version 1)
Quarter: 2017Q1

REPORT INFORMATION
  Report Type: Spontaneous
  Country: US (occurrence: US)
  Receive Date: 20170228
  Receipt Date: 20170228
  Transmission Date: 20170428
  Serious: Yes (Other)
  Sender: FDA-Public Use
  Company Number: None

PATIENT
  Age: 52 Year
  Sex: Female

DRUGS (1)
  1. REMICADE [Suspect]
     Active Substance: INFLIXIMAB
     Indication: ANKYLOSING SPONDYLITIS
     Dosage: END DATE OF USE GIVEN 01/10/2018?500 MG Q6W IV
     Route: 042
     Dates: start: 20170222

REACTIONS (3)
  - Chest pain [None]
  - Dyspnoea [None]
  - Infusion related reaction [None]

NARRATIVE: CASE EVENT DATE: 20170222
